FAERS Safety Report 5428294-4 (Version None)
Quarter: 2007Q3

REPORT INFORMATION
  Report Type: 
  Country: None (occurrence: None)
  Receive Date: 20070823
  Receipt Date: 20070809
  Transmission Date: 20080115
  Serious: Yes (Other)
  Sender: FDA-Public Use
  Company Number: VNL_00647_2007

PATIENT
  Age: 73 Year
  Sex: Male

DRUGS (4)
  1. APO-GO (APO-GO - APOMORPHINE HYDROCHLORIDE) (NOT SPECIFIED) [Suspect]
     Indication: PARKINSON'S DISEASE
     Dosage: (5.5 MG PER HOUR FOR 12 HOURS/DAY SUBCUTANEOUS)
     Route: 058
     Dates: start: 20020201
  2. MADOPAR 125 (CO-BENELDOPA) [Concomitant]
  3. MADOPAR 62.5 [Concomitant]
  4. MADOPAR 125SR (CO-BENELDOPA) [Concomitant]

REACTIONS (3)
  - DYSKINESIA [None]
  - HAEMOLYTIC ANAEMIA [None]
  - WEIGHT DECREASED [None]
